FAERS Safety Report 9945619 (Version 1)
Quarter: 2014Q1

REPORT INFORMATION
  Report Type: Report from Study
  Country: US (occurrence: US)
  Receive Date: 20140303
  Receipt Date: 20140303
  Transmission Date: 20141002
  Serious: No
  Sender: FDA-Public Use
  Company Number: US-ABBVIE-13P-163-1050892-00

PATIENT
  Age: 68 Year
  Sex: Female

DRUGS (1)
  1. HUMIRA [Suspect]
     Indication: RHEUMATOID ARTHRITIS
     Route: 058
     Dates: start: 20100330

REACTIONS (10)
  - Fall [Unknown]
  - Fracture [Unknown]
  - Joint injury [Unknown]
  - Pain [Unknown]
  - Anxiety [Unknown]
  - Panic attack [Unknown]
  - Claustrophobia [Unknown]
  - Arthritis [Unknown]
  - Arthralgia [Unknown]
  - Arthralgia [Unknown]
